FAERS Safety Report 20780437 (Version 2)
Quarter: 2022Q2

REPORT INFORMATION
  Report Type: Spontaneous
  Country: FR (occurrence: FR)
  Receive Date: 20220504
  Receipt Date: 20220520
  Transmission Date: 20220720
  Serious: Yes (Hospitalization, Other)
  Sender: FDA-Public Use
  Company Number: FR-AFSSAPS-SE20212817

PATIENT
  Age: 49 Year
  Sex: Female
  Weight: 101 kg

DRUGS (30)
  1. PANTOPRAZOLE [Suspect]
     Active Substance: PANTOPRAZOLE
     Indication: Product used for unknown indication
     Dosage: 40 MILLIGRAM, ONCE A DAY
     Route: 048
     Dates: start: 20200924, end: 202011
  2. LOVENOX [Suspect]
     Active Substance: ENOXAPARIN SODIUM
     Indication: Thrombosis prophylaxis
     Dosage: 0.8 MILLILITER, ONCE A DAY (0,4 ML X2/DAY)
     Route: 058
     Dates: start: 20200923, end: 20201022
  3. VANCOMYCIN [Suspect]
     Active Substance: VANCOMYCIN
     Indication: Septic shock
     Dosage: 30 MILLIGRAM/KILOGRAM
     Route: 042
     Dates: start: 20200917, end: 20200918
  4. VANCOMYCIN [Suspect]
     Active Substance: VANCOMYCIN
     Dosage: 3 GRAM, ONCE A DAY
     Route: 042
     Dates: start: 20200927, end: 20201009
  5. VANCOMYCIN [Suspect]
     Active Substance: VANCOMYCIN
     Dosage: 1 GRAM, ONCE A DAY
     Route: 042
     Dates: start: 20201009, end: 20201027
  6. CALCIPARINE [Suspect]
     Active Substance: HEPARIN CALCIUM
     Indication: Thrombosis prophylaxis
     Dosage: 0.4 MILLILITER, ONCE A DAY (0,2 ML X2/DAY)
     Route: 058
     Dates: start: 20200918, end: 20200922
  7. CALCIPARINE [Suspect]
     Active Substance: HEPARIN CALCIUM
     Dosage: 0.4 MILLILITER, ONCE A DAY (0,2 ML X2/DAY)
     Route: 058
     Dates: start: 20201022, end: 20201105
  8. LEVOFLOXACIN [Concomitant]
     Active Substance: LEVOFLOXACIN
     Indication: Antibiotic therapy
     Dosage: 1000 MILLIGRAM, TWO TIMES A DAY
     Route: 048
     Dates: start: 20200925
  9. IOBITRIDOL [Concomitant]
     Active Substance: IOBITRIDOL
     Indication: Computerised tomogram
     Dosage: UNK
     Route: 065
     Dates: start: 20200923
  10. VENLAFAXINE [Concomitant]
     Active Substance: VENLAFAXINE HYDROCHLORIDE
     Indication: Product used for unknown indication
     Dosage: 75 MILLIGRAM, ONCE A DAY
     Route: 065
  11. GADOBUTROL [Concomitant]
     Active Substance: GADOBUTROL
     Indication: Magnetic resonance imaging
     Dosage: UNK
     Route: 065
     Dates: start: 20201005
  12. GADOBUTROL [Concomitant]
     Active Substance: GADOBUTROL
     Dosage: UNK
     Route: 065
     Dates: start: 20200928
  13. FUROSEMIDE [Concomitant]
     Active Substance: FUROSEMIDE
     Indication: Product used for unknown indication
     Dosage: UNK
     Route: 065
  14. NOREPINEPHRINE [Concomitant]
     Active Substance: NOREPINEPHRINE
     Indication: Product used for unknown indication
     Dosage: UNK
     Route: 065
  15. ULTRAVIST [Concomitant]
     Active Substance: IOPROMIDE
     Indication: Computerised tomogram
     Dosage: UNK
     Route: 065
     Dates: start: 20200919
  16. ELETRIPTAN [Concomitant]
     Active Substance: ELETRIPTAN
     Indication: Migraine
     Dosage: 40 MILLIGRAM
     Route: 065
  17. CEFAZOLIN [Concomitant]
     Active Substance: CEFAZOLIN
     Indication: Antibiotic therapy
     Dosage: UNK
     Route: 065
     Dates: start: 20200927
  18. CEFAZOLIN [Concomitant]
     Active Substance: CEFAZOLIN
     Dosage: 1 GRAM, FOUR TIMES/DAY
     Route: 065
     Dates: start: 20200917, end: 20200922
  19. CLARISCAN [Concomitant]
     Active Substance: GADOTERATE MEGLUMINE
     Indication: Magnetic resonance imaging
     Dosage: UNK
     Route: 065
     Dates: start: 20200924
  20. ACETAMINOPHEN [Concomitant]
     Active Substance: ACETAMINOPHEN
     Indication: Product used for unknown indication
     Dosage: UNK
     Route: 065
  21. MORPHINE HYDROCHLORIDE [Concomitant]
     Active Substance: MORPHINE HYDROCHLORIDE
     Indication: Product used for unknown indication
     Dosage: UNK
     Route: 065
  22. RIFAMPIN [Concomitant]
     Active Substance: RIFAMPIN
     Indication: Antibiotic therapy
     Dosage: UNK
     Route: 065
  23. CLINDAMYCIN [Concomitant]
     Active Substance: CLINDAMYCIN
     Indication: Antibiotic therapy
     Dosage: UNK
     Route: 065
     Dates: start: 20200925
  24. CLINDAMYCIN [Concomitant]
     Active Substance: CLINDAMYCIN
     Dosage: 600 MILLIGRAM, FOUR TIMES/DAY
     Route: 042
     Dates: start: 20200918, end: 20200922
  25. CEFOTAXIME [Concomitant]
     Active Substance: CEFOTAXIME SODIUM
     Indication: Antibiotic therapy
     Dosage: 2 GRAM, 3 TIMES A DAY
     Route: 042
     Dates: start: 20200916
  26. METRONIDAZOLE [Concomitant]
     Active Substance: METRONIDAZOLE
     Indication: Antibiotic therapy
     Dosage: 500 MILLIGRAM, THRRE TIMES A DAY
     Route: 042
  27. AMIKACIN [Concomitant]
     Active Substance: AMIKACIN
     Indication: Antibiotic therapy
     Dosage: 3600 MILLIGRAM, ONCE A DAY
     Route: 065
     Dates: start: 20200916
  28. DILTIAZEM HYDROCHLORIDE [Concomitant]
     Active Substance: DILTIAZEM HYDROCHLORIDE
     Indication: Product used for unknown indication
     Dosage: UNK
     Route: 065
  29. METOPROLOL [Concomitant]
     Active Substance: METOPROLOL
     Indication: Product used for unknown indication
     Dosage: 200 MILLIGRAM, ONCE A DAY
     Route: 065
  30. STRIADYNE [Concomitant]
     Indication: Product used for unknown indication
     Dosage: UNK
     Route: 065

REACTIONS (2)
  - Erythema multiforme [Recovered/Resolved]
  - Eosinophilia [Recovered/Resolved]

NARRATIVE: CASE EVENT DATE: 20200926
